FAERS Safety Report 22823204 (Version 3)
Quarter: 2023Q4

REPORT INFORMATION
  Report Type: Spontaneous
  Country: US (occurrence: US)
  Receive Date: 20230815
  Receipt Date: 20231215
  Transmission Date: 20240109
  Serious: Yes (Other)
  Sender: FDA-Public Use
  Company Number: US-REGENERON PHARMACEUTICALS, INC.-2023-099931

PATIENT
  Sex: Female

DRUGS (1)
  1. PRALUENT [Suspect]
     Active Substance: ALIROCUMAB
     Indication: Hypercholesterolaemia
     Dosage: 150 MG, Q2W
     Route: 058
     Dates: end: 20230724

REACTIONS (4)
  - Liver injury [Unknown]
  - Blood cholesterol increased [Unknown]
  - Laboratory test abnormal [Unknown]
  - Drug ineffective [Unknown]
